FAERS Safety Report 6275823-7 (Version None)
Quarter: 2009Q3

REPORT INFORMATION
  Report Type: 
  Country: None (occurrence: None)
  Receive Date: 20090717
  Receipt Date: 20090710
  Transmission Date: 20100115
  Serious: Yes (Other)
  Sender: FDA-Public Use
  Company Number: ADR8532009

PATIENT
  Age: 60 Year
  Sex: Female

DRUGS (5)
  1. SERTRALINE HCL [Suspect]
     Indication: DEPRESSION
     Dosage: 50 MG ORAL
     Route: 048
     Dates: start: 20090216, end: 20090404
  2. ASPIRIN [Concomitant]
  3. HYPURIN BOVINE LENTE (INSULIN) [Concomitant]
  4. LEVOTHYROXINE SODIUM [Concomitant]
  5. OLMESARTAN MEDOXOMIL [Concomitant]

REACTIONS (1)
  - GRAND MAL CONVULSION [None]
